FAERS Safety Report 8328894-8 (Version None)
Quarter: 2012Q2

REPORT INFORMATION
  Report Type: 
  Country: None (occurrence: None)
  Receive Date: 20120502
  Receipt Date: 20120425
  Transmission Date: 20120825
  Serious: Yes (Hospitalization)
  Sender: FDA-Public Use
  Company Number: AT-ASTRAZENECA-2012SE26974

PATIENT
  Sex: Female

DRUGS (1)
  1. SEROQUEL [Suspect]
     Dosage: 20 DF TOTAL DOSE 2000 MG
     Route: 048
     Dates: start: 20120105, end: 20120105

REACTIONS (6)
  - DRUG ABUSE [None]
  - DIZZINESS [None]
  - AGITATION [None]
  - HYPOTENSION [None]
  - INTENTIONAL OVERDOSE [None]
  - ELECTROCARDIOGRAM QT PROLONGED [None]
